FAERS Safety Report 25454845 (Version 1)
Quarter: 2025Q2

REPORT INFORMATION
  Report Type: Spontaneous
  Country: IT (occurrence: IT)
  Receive Date: 20250619
  Receipt Date: 20250619
  Transmission Date: 20250717
  Serious: Yes (Life-Threatening, Hospitalization)
  Sender: ACCORD
  Company Number: IT-Accord-490261

PATIENT
  Age: 86 Year
  Sex: Female

DRUGS (2)
  1. ALLOPURINOL [Suspect]
     Active Substance: ALLOPURINOL
     Indication: Gout
  2. AMLODIPINE [Concomitant]
     Active Substance: AMLODIPINE BESYLATE

REACTIONS (4)
  - Leukopenia [Recovering/Resolving]
  - Blood creatinine increased [Recovering/Resolving]
  - SJS-TEN overlap [Recovering/Resolving]
  - Dehydration [Recovering/Resolving]
